FAERS Safety Report 5019813-0 (Version None)
Quarter: 2006Q2

REPORT INFORMATION
  Report Type: 
  Country: None (occurrence: None)
  Receive Date: 20060605
  Receipt Date: 20060605
  Transmission Date: 20061013
  Serious: Yes (Hospitalization)
  Sender: FDA-Public Use
  Company Number: None

PATIENT
  Sex: Female
  Weight: 81.6475 kg

DRUGS (1)
  1. PRIMAXIN [Suspect]
     Indication: KIDNEY INFECTION
     Dosage: 1000 MG EVERY 8 HOURS IV
     Route: 042
     Dates: start: 20060531, end: 20060601

REACTIONS (3)
  - INFUSION RELATED REACTION [None]
  - PRURITUS [None]
  - SWELLING FACE [None]
